FAERS Safety Report 6009955-5 (Version None)
Quarter: 2008Q4

REPORT INFORMATION
  Report Type: 
  Country: None (occurrence: None)
  Receive Date: 20081216
  Receipt Date: 20081205
  Transmission Date: 20090506
  Serious: Yes (Hospitalization)
  Sender: FDA-Public Use
  Company Number: FR-1168056

PATIENT
  Age: 74 Year
  Sex: Female

DRUGS (14)
  1. TOBRADEX [Suspect]
     Dosage: DF BID,  OPHTHALMIC
     Route: 047
     Dates: start: 20080430, end: 20080603
  2. PYOSTACINE (PRISTINAMYCIN) [Concomitant]
  3. OFLOCET (OFLOXACIN) [Concomitant]
  4. TRIVASTAL (PIRIBEDIL) [Concomitant]
  5. CLONAZEPAM [Concomitant]
  6. GAVISCON [Concomitant]
  7. SINGULAIR [Concomitant]
  8. XANAX [Concomitant]
  9. CITALOPRAM HYDROBROMIDE [Concomitant]
  10. KARDEGIC (KARDEGIC) [Concomitant]
  11. AVLOCARDYL (PROPRANOLOL) [Concomitant]
  12. VASTAREL (TRIMETAZIDINE HYDROCHLORIDE) [Concomitant]
  13. BISEPTINE (BENZALKONIUM CHLORIDE) [Concomitant]
  14. CHLORHEXIDINE GLUCONATE [Concomitant]

REACTIONS (6)
  - DERMATITIS CONTACT [None]
  - EAR INFECTION [None]
  - EOSINOPHILIA [None]
  - PRURITUS [None]
  - RASH MACULO-PAPULAR [None]
  - TOXIC SKIN ERUPTION [None]
